FAERS Safety Report 5927538-X (Version None)
Quarter: 2008Q4

REPORT INFORMATION
  Report Type: 
  Country: None (occurrence: None)
  Receive Date: 20081021
  Receipt Date: 20081021
  Transmission Date: 20090506
  Serious: Yes (Hospitalization)
  Sender: FDA-Public Use
  Company Number: None

PATIENT
  Age: 7 Year
  Sex: Male
  Weight: 22 kg

DRUGS (2)
  1. OXYGEN [Suspect]
  2. ROOM AIR [Concomitant]

REACTIONS (7)
  - COUGH [None]
  - IRRITABILITY [None]
  - MEDICAL DEVICE COMPLICATION [None]
  - PSEUDOCYST [None]
  - RENAL FAILURE [None]
  - STAPHYLOCOCCAL INFECTION [None]
  - VOMITING [None]
